FAERS Safety Report 9019651 (Version 10)
Quarter: 2013Q4

REPORT INFORMATION
  Report Type: Report from Study
  Country: CA (occurrence: CA)
  Receive Date: 20130118
  Receipt Date: 20131122
  Transmission Date: 20140711
  Serious: Yes (Hospitalization, Other)
  Sender: FDA-Public Use
  Company Number: CA-INCYTE CORPORATION-2012IN002390

PATIENT
  Age: 73 Year
  Sex: Female

DRUGS (2)
  1. JAKAVI [Suspect]
     Indication: MYELOFIBROSIS
     Dosage: 15 MG, BID
     Route: 048
     Dates: start: 20120924, end: 20131119
  2. ANTIHYPERTENSIVE DRUGS [Concomitant]

REACTIONS (17)
  - Bone disorder [Unknown]
  - Weight increased [Unknown]
  - Rash erythematous [Unknown]
  - Fall [None]
  - Nocturnal dyspnoea [Unknown]
  - Dyspnoea [Unknown]
  - Abdominal discomfort [Unknown]
  - Diarrhoea [Unknown]
  - Hepatic pain [Unknown]
  - Local swelling [Unknown]
  - Chills [Unknown]
  - Dry throat [Unknown]
  - Formication [Unknown]
  - Dry mouth [Recovering/Resolving]
  - Asthenia [None]
  - Anaemia [Unknown]
  - Pruritus [Unknown]
